FAERS Safety Report 8953039 (Version 1)
Quarter: 2012Q4

REPORT INFORMATION
  Report Type: 
  Country: JP (occurrence: JP)
  Receive Date: 20121205
  Receipt Date: 20121205
  Transmission Date: 20130627
  Serious: Yes (Hospitalization)
  Sender: FDA-Public Use
  Company Number: JP-009507513-1211JPN012446

PATIENT
  Age: 66 Year
  Sex: Male
  Weight: 69.6 kg

DRUGS (4)
  1. TEMOZOLOMIDE [Suspect]
     Indication: GLIOBLASTOMA
     Dosage: 75 mg/m2, qd
     Route: 048
     Dates: start: 20101115, end: 20101228
  2. TEMOZOLOMIDE [Suspect]
     Dosage: 150 mg/m2, UNK
     Route: 048
     Dates: start: 20110126, end: 20110208
  3. TEMOZOLOMIDE [Suspect]
     Dosage: 200 mg/m2, UNK
     Route: 048
     Dates: start: 20110330, end: 20110403
  4. INSULIN ASPART [Concomitant]
     Dosage: 8 units, UNK
     Dates: start: 20101129

REACTIONS (1)
  - Brain oedema [Recovering/Resolving]
